FAERS Safety Report 7250060-8 (Version None)
Quarter: 2011Q1

REPORT INFORMATION
  Report Type: 
  Country: None (occurrence: None)
  Receive Date: 20110128
  Receipt Date: 20110106
  Transmission Date: 20110831
  Serious: Yes (Hospitalization, Other)
  Sender: FDA-Public Use
  Company Number: US-BAYER-201041895NA

PATIENT
  Sex: Female

DRUGS (4)
  1. NEURONTIN [Concomitant]
  2. BETASERON [Suspect]
     Indication: THROMBOSIS
     Dosage: BETAJECT
     Route: 058
     Dates: start: 20100805, end: 20101213
  3. BACLOFEN [Concomitant]
  4. MULTI-VITAMIN [Concomitant]

REACTIONS (4)
  - THROMBOSIS [None]
  - CYSTITIS [None]
  - URINARY RETENTION [None]
  - BLADDER PAIN [None]
